FAERS Safety Report 4294300-6 (Version None)
Quarter: 2004Q1

REPORT INFORMATION
  Report Type: 
  Country: None (occurrence: None)
  Receive Date: 20040212
  Receipt Date: 20040212
  Transmission Date: 20041129
  Serious: Yes (Other)
  Sender: FDA-Public Use
  Company Number: None

PATIENT
  Age: 48 Year
  Sex: Female
  Weight: 90 kg

DRUGS (9)
  1. INVANZ [Suspect]
     Indication: OSTEOMYELITIS
     Dosage: 1 GM QD IV
     Route: 042
     Dates: start: 20040128
  2. TOPROL-XL [Concomitant]
  3. DIOVAN [Concomitant]
  4. LASIX [Concomitant]
  5. HUMULIN N [Concomitant]
  6. ASPIRIN [Concomitant]
  7. CALCIUM [Concomitant]
  8. COLACE [Concomitant]
  9. VITAMIN E+ DEPAKOTE [Concomitant]

REACTIONS (1)
  - DIARRHOEA [None]
